FAERS Safety Report 10195202 (Version 2)
Quarter: 2014Q2

REPORT INFORMATION
  Report Type: Spontaneous
  Country: US (occurrence: US)
  Receive Date: 20140526
  Receipt Date: 20140526
  Transmission Date: 20141212
  Serious: Yes (Hospitalization)
  Sender: FDA-Public Use
  Company Number: US-UCBSA-113139

PATIENT
  Sex: Male

DRUGS (4)
  1. VIMPAT [Suspect]
     Indication: EPILEPSY
     Route: 048
  2. KEPPRA [Concomitant]
  3. LAMICTAL [Concomitant]
  4. DEPAKOTE [Concomitant]
     Dosage: 375MG IN THE MORNING, 500MG AT NIGHT

REACTIONS (3)
  - Urinary tract infection [Unknown]
  - Sepsis [Unknown]
  - Hyponatraemia [Not Recovered/Not Resolved]
